FAERS Safety Report 4961703-3 (Version None)
Quarter: 2006Q1

REPORT INFORMATION
  Report Type: 
  Country: None (occurrence: None)
  Receive Date: 20060323
  Receipt Date: 20050309
  Transmission Date: 20060701
  Serious: Yes (Hospitalization)
  Sender: FDA-Public Use
  Company Number: WSDF_00510

PATIENT
  Age: 14 Year
  Sex: Female
  Weight: 54.4 kg

DRUGS (2)
  1. WINRHO SDF [Suspect]
     Indication: IDIOPATHIC THROMBOCYTOPENIC PURPURA
     Dosage: 72 MCG/KG ONCE IV
     Route: 042
     Dates: start: 20040804, end: 20040804
  2. PREDNISONE [Concomitant]

REACTIONS (8)
  - ACUTE RESPIRATORY DISTRESS SYNDROME [None]
  - ANTIBODY TEST POSITIVE [None]
  - ASTHENIA [None]
  - BLOOD IMMUNOGLOBULIN G INCREASED [None]
  - CHILLS [None]
  - LUNG INFILTRATION [None]
  - PYREXIA [None]
  - TRANSFUSION-RELATED ACUTE LUNG INJURY [None]
